FAERS Safety Report 11547081 (Version 1)
Quarter: 2015Q3

REPORT INFORMATION
  Report Type: Spontaneous
  Country: CH (occurrence: GR)
  Receive Date: 20150924
  Receipt Date: 20150924
  Transmission Date: 20151125
  Serious: Yes (Other)
  Sender: FDA-Public Use
  Company Number: CH-LPDUSPRD-20150727

PATIENT
  Age: 82 Year
  Sex: Female

DRUGS (1)
  1. FERINJECT [Suspect]
     Active Substance: FERRIC CARBOXYMALTOSE
     Dosage: 1 GM
     Route: 041
     Dates: start: 20150904, end: 20150904

REACTIONS (3)
  - Dyspnoea [Unknown]
  - Rash [Unknown]
  - Bronchospasm [Unknown]

NARRATIVE: CASE EVENT DATE: 20150904
